FAERS Safety Report 11160955 (Version 1)
Quarter: 2015Q2

REPORT INFORMATION
  Report Type: Spontaneous
  Country: US (occurrence: US)
  Receive Date: 20150604
  Receipt Date: 20150604
  Transmission Date: 20150821
  Serious: No
  Sender: FDA-Public Use
  Company Number: US-SA-2014SA072277

PATIENT
  Sex: Male

DRUGS (3)
  1. INSULIN, REGULAR [Concomitant]
     Active Substance: INSULIN NOS
  2. LANTUS SOLOSTAR [Suspect]
     Active Substance: INSULIN GLARGINE
     Indication: TYPE 1 DIABETES MELLITUS
     Dosage: START DATE: 5 DAYS AGO DOSE:30 UNIT(S)
     Route: 058
  3. NPH INSULIN [Concomitant]
     Active Substance: INSULIN BEEF

REACTIONS (2)
  - Hyperglycaemia [Unknown]
  - Hypoglycaemia [Unknown]
